FAERS Safety Report 17544851 (Version 2)
Quarter: 2020Q1

REPORT INFORMATION
  Report Type: Spontaneous
  Country: US (occurrence: US)
  Receive Date: 20200316
  Receipt Date: 20200331
  Transmission Date: 20200409
  Serious: Yes (Other)
  Sender: FDA-Public Use
  Company Number: US-SA-2020SA065233

PATIENT
  Sex: Male

DRUGS (1)
  1. ZANTAC [Suspect]
     Active Substance: RANITIDINE HYDROCHLORIDE
     Indication: DYSPEPSIA
     Dosage: 5 TO 6 TIMES PER WEEK
     Dates: start: 2011, end: 2018

REACTIONS (3)
  - Pain [Unknown]
  - Renal cancer [Unknown]
  - Impaired quality of life [Unknown]

NARRATIVE: CASE EVENT DATE: 201809
